FAERS Safety Report 4450282-5 (Version None)
Quarter: 2004Q3

REPORT INFORMATION
  Report Type: 
  Country: None (occurrence: None)
  Receive Date: 20040914
  Receipt Date: 20040830
  Transmission Date: 20050211
  Serious: Yes (Other)
  Sender: FDA-Public Use
  Company Number: 2004037364

PATIENT
  Age: 36 Year
  Sex: Male

DRUGS (4)
  1. ZYRTEC [Suspect]
     Indication: PRURITUS
     Dosage: ONE TABLET, ORAL
     Route: 048
     Dates: start: 20020101
  2. ZYRTEC [Suspect]
     Indication: PRURITUS
     Dosage: ONE TABLET, ORAL
     Route: 048
     Dates: start: 20040101
  3. PRAZEPAM [Concomitant]
  4. LEVOCETIRIZINE DIHYDROCHLORIDE (LEVOCETIRIZINE DIHYDROCLORIDE) [Concomitant]

REACTIONS (2)
  - CYTOLYTIC HEPATITIS [None]
  - HEPATIC STEATOSIS [None]
